FAERS Safety Report 12074092 (Version 1)
Quarter: 2016Q1

REPORT INFORMATION
  Report Type: Report from Study
  Country: GB (occurrence: GB)
  Receive Date: 20160212
  Receipt Date: 20160212
  Transmission Date: 20160526
  Serious: Yes (Other)
  Sender: FDA-Public Use
  Company Number: GB-ABBVIE-16K-167-1556356-00

PATIENT
  Sex: Female

DRUGS (1)
  1. HUMIRA [Suspect]
     Active Substance: ADALIMUMAB
     Indication: PRODUCT USED FOR UNKNOWN INDICATION
     Route: 058

REACTIONS (4)
  - Lower respiratory tract infection [Unknown]
  - Cardiac disorder [Unknown]
  - Malaise [Unknown]
  - Bronchitis [Unknown]

NARRATIVE: CASE EVENT DATE: 2015
